FAERS Safety Report 6761233-2 (Version None)
Quarter: 2010Q2

REPORT INFORMATION
  Report Type: 
  Country: None (occurrence: None)
  Receive Date: 20100608
  Receipt Date: 20100526
  Transmission Date: 20101027
  Serious: Yes (Other)
  Sender: FDA-Public Use
  Company Number: PHHY2010JP34534

PATIENT
  Age: 16 Year
  Sex: Male

DRUGS (2)
  1. CYCLOSPORINE [Suspect]
     Indication: NEPHROTIC SYNDROME
     Route: 048
  2. PREDNISOLONE [Concomitant]
     Indication: NEPHROTIC SYNDROME
     Route: 048

REACTIONS (2)
  - IMPAIRED HEALING [None]
  - INFECTION SUSCEPTIBILITY INCREASED [None]
